FAERS Safety Report 8900399 (Version 1)
Quarter: 2012Q4

REPORT INFORMATION
  Report Type: Report from Study
  Country: CA (occurrence: CA)
  Receive Date: 20121109
  Receipt Date: 20121109
  Transmission Date: 20130627
  Serious: Yes (Hospitalization)
  Sender: FDA-Public Use
  Company Number: CA-BAYER-2012-114823

PATIENT

DRUGS (1)
  1. BLINDED ACETYLSALICYLIC ACID({=100 MG) [Suspect]

REACTIONS (1)
  - Wound haematoma [Recovered/Resolved]
